FAERS Safety Report 18321192 (Version 1)
Quarter: 2020Q3

REPORT INFORMATION
  Report Type: Spontaneous
  Country: NL (occurrence: NL)
  Receive Date: 20200928
  Receipt Date: 20200928
  Transmission Date: 20201103
  Serious: Yes (Other)
  Sender: FDA-Public Use
  Company Number: NL-TEVA-2020-NL-1831177

PATIENT
  Age: 66 Year
  Sex: Male
  Weight: 101 kg

DRUGS (10)
  1. BICALUTAMIDE TABLET 150MG / BRAND NAME NOT SPECIFIED [Suspect]
     Active Substance: BICALUTAMIDE
     Indication: PROSTATE CANCER
     Dosage: 150 MILLIGRAM DAILY; THERAPY END DATE : ASKU
     Dates: start: 20150818
  2. SIMVASTATINE TABLET FO 40MG / BRAND NAME NOT SPECIFIED [Interacting]
     Active Substance: SIMVASTATIN
     Indication: PROPHYLAXIS
     Dosage: 40 MILLIGRAM DAILY;
     Dates: start: 2004, end: 20160419
  3. LIRAGLUTIDE INJVLST 6MG/ML / VICTOZA INJVLST 6MG/ML WWSP 3ML [Concomitant]
     Dosage: 1.8 MILLIGRAM DAILY; THERAPY START DATE : ASKU, THERAPY END DATE : ASKU
  4. OMEPRAZOL CAPSULE MGA 20MG ? NON?CURRENT DRUG / BRAND NAME NOT SPECIFI [Concomitant]
     Dosage: 20 MILLIGRAM DAILY; THERAPY START DATE : ASKU, THERAPY END DATE : ASKU
  5. GLICLAZIDE TABLET MGA 80MG / BRAND NAME NOT SPECIFIED [Concomitant]
     Dosage: 160 MILLIGRAM DAILY; THERAPY START DATE : ASKU, THERAPY END DATE : ASKU
  6. OXYCODON [Concomitant]
     Active Substance: OXYCODONE
     Dosage: 1 TO 4 TIMES A DAY AS NEEDED AT DO, THERAPY START DATE : ASKU, THERAPY END DATE : ASKU
  7. MULTIVITAMINEN [Concomitant]
     Dosage: 1 DOSAGE FORM, THERAPY START DATE : ASKU, THERAPY END DATE : ASKU
  8. METFORMINE TABLET   500MG / BRAND NAME NOT SPECIFIED [Concomitant]
     Dosage: 1000 MILLIGRAM DAILY; THERAPY START DATE : ASKU, THERAPY END DATE : ASKU
  9. GOSERELINE IMPLANTATIESTIFT 10,8MG / ZOLADEX IMPLANTATIESTIFT 10,8MG I [Concomitant]
     Dosage: 1 X EVERY 3 MONTHS, THERAPY START DATE : ASKU, THERAPY END DATE : ASKU
  10. OXYCODON [Concomitant]
     Active Substance: OXYCODONE
     Dosage: 2 X DAILY 3 X 5 MG, UNIT DOE: 30MG, THERAPY START DATE : ASKU, THERAPY END DATE : ASKU

REACTIONS (4)
  - Weight increased [Unknown]
  - Blood glucose fluctuation [Not Recovered/Not Resolved]
  - Drug interaction [Unknown]
  - Osteonecrosis [Recovered/Resolved]

NARRATIVE: CASE EVENT DATE: 201509
